APPROVED DRUG PRODUCT: PROPRANOLOL HYDROCHLORIDE
Active Ingredient: PROPRANOLOL HYDROCHLORIDE
Strength: 80MG
Dosage Form/Route: CAPSULE, EXTENDED RELEASE;ORAL
Application: A078311 | Product #002
Applicant: UPSHER SMITH LABORATORIES LLC
Approved: Mar 6, 2009 | RLD: No | RS: No | Type: DISCN